FAERS Safety Report 16760494 (Version 1)
Quarter: 2019Q3

REPORT INFORMATION
  Report Type: Report from Study
  Country: ZA (occurrence: ZA)
  Receive Date: 20190830
  Receipt Date: 20190830
  Transmission Date: 20191005
  Serious: Yes (Hospitalization)
  Sender: FDA-Public Use
  Company Number: ZA-SA-2019SA101643

PATIENT
  Age: 54 Year
  Sex: Male

DRUGS (5)
  1. DIAGLUCIDE [Concomitant]
     Active Substance: GLICLAZIDE
     Dosage: 120 MG AT BEFORE SUPPER AND BEFORE BREAKFAST, BID
     Route: 065
     Dates: start: 20180101
  2. DIAGLUCIDE [Concomitant]
     Active Substance: GLICLAZIDE
     Dosage: 120 MG, QD
  3. GLUCOPHAGE XR [Concomitant]
     Active Substance: METFORMIN HYDROCHLORIDE
     Dosage: 500 MG, BID
  4. GLUCOPHAGE XR [Concomitant]
     Active Substance: METFORMIN HYDROCHLORIDE
     Dosage: 1000 MG, BID
     Route: 065
     Dates: start: 20180101
  5. INSULIN GLARGINE [Suspect]
     Active Substance: INSULIN GLARGINE
     Dosage: 12 U, HS
     Dates: start: 20190312

REACTIONS (4)
  - Pruritus [Not Recovered/Not Resolved]
  - Injection site discolouration [Not Recovered/Not Resolved]
  - Glycosylated haemoglobin increased [Unknown]
  - Pigmentation disorder [Not Recovered/Not Resolved]

NARRATIVE: CASE EVENT DATE: 20190326
